FAERS Safety Report 5094755-3 (Version None)
Quarter: 2006Q3

REPORT INFORMATION
  Report Type: 
  Country: None (occurrence: None)
  Receive Date: 20060731
  Receipt Date: 20060419
  Transmission Date: 20061208
  Serious: No
  Sender: FDA-Public Use
  Company Number: 2006PV012347

PATIENT
  Age: 59 Year
  Sex: Female

DRUGS (3)
  1. BYETTA [Suspect]
     Indication: DIABETES MELLITUS NON-INSULIN-DEPENDENT
     Dosage: 5 MCG;QPM;SC
     Route: 058
     Dates: start: 20060418
  2. BLOOD PRESSURE MEDICATIONS NOS [Concomitant]
  3. HEART MEDICATIONS NOS [Concomitant]

REACTIONS (2)
  - HEART RATE INCREASED [None]
  - THROAT IRRITATION [None]
